FAERS Safety Report 5294036-9 (Version None)
Quarter: 2007Q1

REPORT INFORMATION
  Report Type: 
  Country: None (occurrence: None)
  Receive Date: 20070116
  Receipt Date: 20060626
  Transmission Date: 20070707
  Serious: Yes (Other)
  Sender: FDA-Public Use
  Company Number: HQWYE402918FEB05

PATIENT
  Age: 54 Year
  Sex: Female
  Weight: 81.72 kg

DRUGS (4)
  1. PREMPRO [Suspect]
     Dosage: 0.625MG/2.5MG, ORAL
     Route: 048
     Dates: start: 19980101, end: 20030201
  2. PREMARIN [Suspect]
     Dosage: ORAL
     Route: 048
     Dates: start: 19900101, end: 19950201
  3. VERAPAMIL [Concomitant]
  4. TRIAM ^LICHTENSTEIN^ (TRIAMCINOLONE ACETONIDE) [Concomitant]

REACTIONS (1)
  - BREAST CANCER [None]
